FAERS Safety Report 5605970-1 (Version None)
Quarter: 2008Q1

REPORT INFORMATION
  Report Type: 
  Country: None (occurrence: None)
  Receive Date: 20080129
  Receipt Date: 20071227
  Transmission Date: 20080703
  Serious: No
  Sender: FDA-Public Use
  Company Number: US-AMGEN-KDL258264

PATIENT
  Sex: Female

DRUGS (1)
  1. KEPIVANCE [Suspect]
     Indication: BONE MARROW TRANSPLANT
     Dates: start: 20071201

REACTIONS (2)
  - HYPOAESTHESIA ORAL [None]
  - PARAESTHESIA ORAL [None]
